FAERS Safety Report 4701287-8 (Version None)
Quarter: 2005Q2

REPORT INFORMATION
  Report Type: 
  Country: None (occurrence: None)
  Receive Date: 20050628
  Receipt Date: 20050622
  Transmission Date: 20051028
  Serious: Yes (Other)
  Sender: FDA-Public Use
  Company Number: JP-MERCK-0506USA03439

PATIENT
  Age: 59 Year
  Sex: Female

DRUGS (7)
  1. ALDOMET [Suspect]
     Indication: HYPERTENSION
     Route: 048
     Dates: start: 20050609, end: 20050616
  2. NORVASC [Concomitant]
     Indication: HYPERTENSION
     Route: 048
  3. NIFEDIPINE [Concomitant]
     Indication: HYPERTENSION
     Route: 048
  4. [THERAPY UNSPECIFIED] [Concomitant]
     Indication: HYPERTENSION
     Route: 048
  5. HALCION [Concomitant]
     Route: 048
  6. THYRADIN-S [Concomitant]
     Indication: THYROID DISORDER
     Route: 048
  7. ANPLAG [Concomitant]
     Route: 048

REACTIONS (2)
  - AMNESIA [None]
  - DYSARTHRIA [None]
